FAERS Safety Report 22932690 (Version 3)
Quarter: 2023Q4

REPORT INFORMATION
  Report Type: Report from Study
  Country: US (occurrence: US)
  Receive Date: 20230912
  Receipt Date: 20231027
  Transmission Date: 20240110
  Serious: Yes (Other)
  Sender: FDA-Public Use
  Company Number: US-ABBVIE-5399876

PATIENT
  Sex: Male

DRUGS (2)
  1. VENCLEXTA [Suspect]
     Active Substance: VENETOCLAX
     Indication: Acute myeloid leukaemia (in remission)
     Route: 048
     Dates: start: 202206
  2. VIDAZA [Concomitant]
     Active Substance: AZACITIDINE
     Indication: Product used for unknown indication

REACTIONS (9)
  - Red blood cell count decreased [Unknown]
  - Asthenia [Unknown]
  - Pain in jaw [Unknown]
  - White blood cell count abnormal [Unknown]
  - Noninfective gingivitis [Unknown]
  - Haemoglobin abnormal [Unknown]
  - Platelet count abnormal [Unknown]
  - Unevaluable event [Unknown]
  - Fatigue [Unknown]
